FAERS Safety Report 9609292 (Version 1)
Quarter: 2013Q4

REPORT INFORMATION
  Report Type: Spontaneous
  Country: US (occurrence: US)
  Receive Date: 20131009
  Receipt Date: 20131009
  Transmission Date: 20140711
  Serious: No
  Sender: FDA-Public Use
  Company Number: US-009507513-1310USA001238

PATIENT
  Age: 43 Year
  Sex: Female
  Weight: 44.44 kg

DRUGS (2)
  1. NEXPLANON [Suspect]
     Indication: CONTRACEPTION
     Dosage: 1 ROD FOR 3 YEARS
     Route: 059
     Dates: start: 20130904
  2. VYVANSE [Concomitant]
     Indication: ATTENTION DEFICIT/HYPERACTIVITY DISORDER
     Dosage: 40 MG, QD

REACTIONS (6)
  - Rhinorrhoea [Unknown]
  - Appetite disorder [Unknown]
  - Muscle spasms [Unknown]
  - Back pain [Unknown]
  - Mood altered [Unknown]
  - Abdominal pain upper [Unknown]
